FAERS Safety Report 5619238-0 (Version None)
Quarter: 2008Q1

REPORT INFORMATION
  Report Type: 
  Country: None (occurrence: None)
  Receive Date: 20080205
  Receipt Date: 20080121
  Transmission Date: 20080703
  Serious: Yes (Other)
  Sender: FDA-Public Use
  Company Number: OMPQ-NO-0801S-0039

PATIENT
  Age: 75 Year
  Sex: Female

DRUGS (3)
  1. OMNITRAST (IOHEXOL) [Suspect]
     Indication: DRUG USE FOR UNKNOWN INDICATION
     Dosage: NR, SINGLE DOSE
     Dates: start: 20071204, end: 20071204
  2. SINTROM [Concomitant]
  3. CITRALOPRAM (SEROPRAM) [Concomitant]

REACTIONS (15)
  - ANOREXIA [None]
  - ATRIAL FIBRILLATION [None]
  - CARDIOMYOPATHY [None]
  - DEPRESSION [None]
  - DIARRHOEA [None]
  - DIZZINESS [None]
  - DRY MOUTH [None]
  - FAECAL INCONTINENCE [None]
  - HEADACHE [None]
  - HYPERSOMNIA [None]
  - MUSCULAR WEAKNESS [None]
  - MYALGIA [None]
  - PRURITUS [None]
  - RESPIRATORY TRACT INFECTION [None]
  - TREMOR [None]
